FAERS Safety Report 4978012-9 (Version None)
Quarter: 2006Q2

REPORT INFORMATION
  Report Type: 
  Country: None (occurrence: None)
  Receive Date: 20060414
  Receipt Date: 20060331
  Transmission Date: 20061013
  Serious: Yes (Hospitalization)
  Sender: FDA-Public Use
  Company Number: VNL_0121_2006

PATIENT
  Age: 71 Year
  Sex: Male

DRUGS (1)
  1. APO-GO [Suspect]
     Indication: PARKINSON'S DISEASE
     Dosage: 74.5 MG/DAY INFUSION SC
     Route: 058
     Dates: start: 20060221

REACTIONS (7)
  - ASTHENIA [None]
  - DEVICE MALFUNCTION [None]
  - DYSPNOEA [None]
  - FATIGUE [None]
  - MOBILITY DECREASED [None]
  - PALLOR [None]
  - STOMACH DISCOMFORT [None]
